FAERS Safety Report 5524854-0 (Version None)
Quarter: 2007Q4

REPORT INFORMATION
  Report Type: 
  Country: None (occurrence: None)
  Receive Date: 20071126
  Receipt Date: 20071113
  Transmission Date: 20080405
  Serious: Yes (Hospitalization)
  Sender: FDA-Public Use
  Company Number: PHBS2007NL19073

PATIENT
  Age: 40 Year
  Sex: Female

DRUGS (1)
  1. RITALIN [Suspect]
     Dosage: 0.5 DF, QID

REACTIONS (1)
  - UTERUS EVACUATION [None]
